FAERS Safety Report 13152712 (Version 1)
Quarter: 2017Q1

REPORT INFORMATION
  Report Type: Spontaneous
  Country: FR (occurrence: FR)
  Receive Date: 20170125
  Receipt Date: 20170125
  Transmission Date: 20170428
  Serious: Yes (Other)
  Sender: FDA-Public Use
  Company Number: FR-009507513-1701FRA011329

PATIENT
  Age: 63 Year

DRUGS (11)
  1. CEFAZOLIN [Suspect]
     Active Substance: CEFAZOLIN
     Dosage: 2 G, UNK
     Route: 051
     Dates: start: 20161130, end: 20161130
  2. PERFALGAN [Suspect]
     Active Substance: ACETAMINOPHEN
     Indication: POSTOPERATIVE ANALGESIA
     Dosage: UNK
     Route: 051
     Dates: start: 20161130
  3. PROPOFOL. [Suspect]
     Active Substance: PROPOFOL
     Indication: ANAESTHESIA
     Dosage: UNK
     Dates: start: 20161130, end: 20161130
  4. SUFENTANIL [Suspect]
     Active Substance: SUFENTANIL
     Dosage: UNK
     Dates: start: 20161130, end: 20161130
  5. KETAMINE [Suspect]
     Active Substance: KETAMINE
     Dosage: UNK
     Dates: start: 20161130, end: 20161130
  6. XANAX [Concomitant]
     Active Substance: ALPRAZOLAM
     Dosage: UNK, IF NEEDED
  7. SEVORANE [Suspect]
     Active Substance: SEVOFLURANE
     Dosage: UNK
     Dates: start: 20161130, end: 20161130
  8. XYLOCAINE [Suspect]
     Active Substance: LIDOCAINE HYDROCHLORIDE
     Dosage: UNK
     Dates: start: 20161130, end: 20161130
  9. ACUPAN [Suspect]
     Active Substance: NEFOPAM HYDROCHLORIDE
     Indication: POSTOPERATIVE ANALGESIA
     Dosage: UNK
     Dates: start: 20161130
  10. ESCITALOPRAM [Suspect]
     Active Substance: ESCITALOPRAM OXALATE
     Dosage: UNK, IF NEEDED
  11. KEYTRUDA [Suspect]
     Active Substance: PEMBROLIZUMAB
     Indication: MALIGNANT MELANOMA
     Dosage: 150 MG, EVERY 3 WEEKS
     Route: 051
     Dates: start: 20161128, end: 20161128

REACTIONS (1)
  - Hepatocellular injury [Recovered/Resolved]

NARRATIVE: CASE EVENT DATE: 201612
